FAERS Safety Report 26215843 (Version 1)
Quarter: 2025Q4

REPORT INFORMATION
  Report Type: Spontaneous
  Country: US (occurrence: US)
  Receive Date: 20251231
  Receipt Date: 20251231
  Transmission Date: 20260117
  Serious: Yes (Other)
  Sender: RANBAXY
  Company Number: US-SUN PHARMACEUTICAL INDUSTRIES INC-2025R1-543932

PATIENT
  Age: 54 Year
  Sex: Male

DRUGS (1)
  1. DIGOXIN [Suspect]
     Active Substance: DIGOXIN
     Indication: Chronic kidney disease
     Dosage: 0.125 MILLIGRAM, QD
     Route: 065

REACTIONS (2)
  - Product administration error [Unknown]
  - Chorea [Recovered/Resolved]
